FAERS Safety Report 24058068 (Version 1)
Quarter: 2024Q3

REPORT INFORMATION
  Report Type: Spontaneous
  Country: IN (occurrence: IN)
  Receive Date: 20240707
  Receipt Date: 20240707
  Transmission Date: 20241016
  Serious: Yes (Other)
  Sender: JOHNSON AND JOHNSON
  Company Number: IN-JNJFOC-20240701667

PATIENT
  Age: 16 Year
  Sex: Male

DRUGS (1)
  1. SPORANOX [Suspect]
     Active Substance: ITRACONAZOLE
     Indication: Body tinea
     Route: 065

REACTIONS (4)
  - Mixed liver injury [Recovering/Resolving]
  - Night blindness [Unknown]
  - Incorrect product administration duration [Unknown]
  - Off label use [Unknown]
